FAERS Safety Report 15886202 (Version 7)
Quarter: 2020Q1

REPORT INFORMATION
  Report Type: Spontaneous
  Country: US (occurrence: US)
  Receive Date: 20190129
  Receipt Date: 20200214
  Transmission Date: 20200409
  Serious: Yes (Hospitalization, Other)
  Sender: FDA-Public Use
  Company Number: US-PFIZER INC-2019042053

PATIENT
  Age: 81 Year
  Sex: Female
  Weight: 73 kg

DRUGS (6)
  1. AMLODIPINE BESYLATE. [Concomitant]
     Active Substance: AMLODIPINE BESYLATE
     Dosage: 10 MG, 1X/DAY
  2. DILANTIN [Interacting]
     Active Substance: PHENYTOIN
     Dosage: 300 MG, DAILY
     Dates: start: 1959
  3. EXEMESTANE MYLAN [Interacting]
     Active Substance: EXEMESTANE
     Indication: HORMONE SUPPRESSION THERAPY
     Dosage: 25 MG, 1X/DAY
     Route: 048
     Dates: start: 201807, end: 20181220
  4. LOSARTAN. [Concomitant]
     Active Substance: LOSARTAN
     Dosage: 25 MG, 1X/DAY
  5. SERTRALINE [Concomitant]
     Active Substance: SERTRALINE HYDROCHLORIDE
     Dosage: 100 MG, 1X/DAY
  6. DILANTIN [Suspect]
     Active Substance: PHENYTOIN
     Indication: SEIZURE
     Dosage: 300 MG, NIGHTLY (AT NIGHT)
     Route: 048
     Dates: start: 1963

REACTIONS (15)
  - Electrocardiogram QRS complex prolonged [Unknown]
  - Hepatic enzyme decreased [Recovered/Resolved]
  - Anticonvulsant drug level decreased [Recovered/Resolved]
  - Seizure [Recovered/Resolved]
  - Headache [Unknown]
  - Drug interaction [Recovered/Resolved]
  - Sinus tachycardia [Unknown]
  - Confusional state [Unknown]
  - Sedation [Unknown]
  - Tachypnoea [Unknown]
  - Unresponsive to stimuli [Unknown]
  - Nausea [Unknown]
  - Postictal state [Recovered/Resolved]
  - Pain [Unknown]
  - Bundle branch block left [Unknown]

NARRATIVE: CASE EVENT DATE: 201812
